FAERS Safety Report 18146257 (Version 5)
Quarter: 2020Q4

REPORT INFORMATION
  Report Type: Report from Study
  Country: US (occurrence: US)
  Receive Date: 20200813
  Receipt Date: 20201230
  Transmission Date: 20210113
  Serious: Yes (Hospitalization)
  Sender: FDA-Public Use
  Company Number: US-EISAI MEDICAL RESEARCH-EC-2020-077531

PATIENT
  Age: 72 Year
  Sex: Male
  Weight: 89.3 kg

DRUGS (15)
  1. COMBIGAN [Concomitant]
     Active Substance: BRIMONIDINE TARTRATE\TIMOLOL MALEATE
     Dosage: 0.2-0.5%
  2. LANTUS [Concomitant]
     Active Substance: INSULIN GLARGINE
     Dosage: 100 /ML VIAL
  3. FLUTICASONE PROPIONATE. [Concomitant]
     Active Substance: FLUTICASONE PROPIONATE
  4. PROMETHAZINE HCL [Concomitant]
     Active Substance: PROMETHAZINE HYDROCHLORIDE
  5. SINGULAIR [Concomitant]
     Active Substance: MONTELUKAST SODIUM
  6. PROPRANOLOL HCL [Concomitant]
     Active Substance: PROPRANOLOL HYDROCHLORIDE
  7. ZOFRAN [Concomitant]
     Active Substance: ONDANSETRON HYDROCHLORIDE
  8. LENVIMA [Suspect]
     Active Substance: LENVATINIB
     Indication: LIVER DISORDER
     Route: 048
     Dates: start: 20200809, end: 2020
  9. LENVIMA [Suspect]
     Active Substance: LENVATINIB
     Route: 048
     Dates: start: 2020, end: 202010
  10. PROTONIX [Concomitant]
     Active Substance: PANTOPRAZOLE SODIUM
  11. DICYCLOMINE HCL [Concomitant]
     Active Substance: DICYCLOMINE HYDROCHLORIDE
  12. LENVIMA [Suspect]
     Active Substance: LENVATINIB
     Indication: HEPATOCELLULAR CARCINOMA
     Route: 048
     Dates: start: 20200708, end: 2020
  13. BYDUREON BCISE [Concomitant]
     Active Substance: EXENATIDE
  14. CLARITIN [Concomitant]
     Active Substance: LORATADINE
  15. ALDACTONE [Concomitant]
     Active Substance: SPIRONOLACTONE

REACTIONS (20)
  - Diarrhoea [Not Recovered/Not Resolved]
  - Incoherent [Unknown]
  - Decreased appetite [Unknown]
  - Rash [Unknown]
  - Encephalopathy [Unknown]
  - Blood magnesium decreased [Unknown]
  - Blood pressure increased [Recovered/Resolved]
  - Liver disorder [Unknown]
  - Rash pruritic [Unknown]
  - Weight decreased [Unknown]
  - Dysphonia [Recovering/Resolving]
  - Fluid retention [Unknown]
  - Dehydration [Unknown]
  - Urinary tract infection [Unknown]
  - Vomiting [Unknown]
  - Nausea [Unknown]
  - Ammonia increased [Unknown]
  - Erythema [Unknown]
  - Hallucination, visual [Unknown]
  - Asthenia [Unknown]

NARRATIVE: CASE EVENT DATE: 2020
